FAERS Safety Report 18192211 (Version 1)
Quarter: 2020Q3

REPORT INFORMATION
  Report Type: Spontaneous
  Country: US (occurrence: US)
  Receive Date: 20200825
  Receipt Date: 20200825
  Transmission Date: 20201103
  Serious: No
  Sender: FDA-Public Use
  Company Number: US-PFIZER INC-2020326127

PATIENT
  Age: 40 Year
  Sex: Female

DRUGS (1)
  1. XELJANZ XR [Suspect]
     Active Substance: TOFACITINIB CITRATE
     Dosage: 11 MG
     Dates: start: 20200722

REACTIONS (7)
  - Vomiting [Unknown]
  - Stomatitis [Unknown]
  - Feeding disorder [Unknown]
  - Dry mouth [Unknown]
  - Hypoglycaemia [Unknown]
  - Product dose omission issue [Unknown]
  - Depression [Unknown]
